FAERS Safety Report 5840403-1 (Version None)
Quarter: 2008Q3

REPORT INFORMATION
  Report Type: 
  Country: None (occurrence: None)
  Receive Date: 20080807
  Receipt Date: 20080731
  Transmission Date: 20090109
  Serious: Yes (Other)
  Sender: FDA-Public Use
  Company Number: OSCN-PR-0808S-0479

PATIENT
  Age: 22 Year
  Sex: Male

DRUGS (2)
  1. OMNISCAN [Suspect]
     Indication: TRANSIENT ISCHAEMIC ATTACK
     Dosage: , SINGLE DOSE, I.V.
     Route: 042
     Dates: start: 20060404, end: 20060404
  2. OMNISCAN [Suspect]
     Indication: TRANSIENT ISCHAEMIC ATTACK
     Dosage: , SINGLE DOSE, I.V.
     Route: 042
     Dates: start: 20060410, end: 20060410

REACTIONS (2)
  - NEPHROGENIC SYSTEMIC FIBROSIS [None]
  - OEDEMA PERIPHERAL [None]
